FAERS Safety Report 7904832-4 (Version None)
Quarter: 2011Q4

REPORT INFORMATION
  Report Type: 
  Country: None (occurrence: None)
  Receive Date: 20111109
  Receipt Date: 20111031
  Transmission Date: 20120403
  Serious: Yes (Other)
  Sender: FDA-Public Use
  Company Number: HR-ASTRAZENECA-2011SE65817

PATIENT
  Age: 79 Year
  Sex: Female

DRUGS (4)
  1. NOVOLOG MIX 70/30 [Concomitant]
     Indication: DIABETES MELLITUS
     Route: 058
  2. FURSEMID [Concomitant]
     Indication: HYPERTENSION
     Route: 048
  3. GLUCOPHAGE [Concomitant]
     Indication: DIABETES MELLITUS
     Route: 048
  4. PLENDIL [Suspect]
     Indication: HYPERTENSION
     Route: 048
     Dates: start: 20101001, end: 20111019

REACTIONS (2)
  - ATRIAL FIBRILLATION [None]
  - BRADYARRHYTHMIA [None]
